FAERS Safety Report 5235507-0 (Version None)
Quarter: 2007Q1

REPORT INFORMATION
  Report Type: 
  Country: None (occurrence: None)
  Receive Date: 20061208
  Receipt Date: 20060627
  Transmission Date: 20070707
  Serious: Yes (Other)
  Sender: FDA-Public Use
  Company Number: 2006UW13544

PATIENT
  Age: 63 Year
  Sex: Female
  Weight: 77.11 kg

DRUGS (9)
  1. CRESTOR [Suspect]
     Indication: BLOOD CHOLESTEROL INCREASED
     Dosage: 5 MG PO
     Route: 048
  2. DICYCLOMINE [Concomitant]
  3. ULTRAM [Concomitant]
  4. NEXIUM ORAL [Concomitant]
  5. DICLOMANINE [Concomitant]
  6. MOBIC [Concomitant]
  7. FISH OIL [Concomitant]
  8. GLUCOSAMINE [Concomitant]
  9. VITAMIN CAP [Concomitant]

REACTIONS (2)
  - CARDIAC DISORDER [None]
  - FEELING ABNORMAL [None]
